FAERS Safety Report 10224942 (Version 1)
Quarter: 2014Q2

REPORT INFORMATION
  Report Type: Spontaneous
  Country: US (occurrence: US)
  Receive Date: 20140609
  Receipt Date: 20140609
  Transmission Date: 20141212
  Serious: Yes (Other)
  Sender: FDA-Public Use
  Company Number: US-BRISTOL-MYERS SQUIBB COMPANY-20868220

PATIENT
  Age: 42 Year
  Sex: Female

DRUGS (1)
  1. SPRYCEL [Suspect]
     Indication: CHRONIC MYELOID LEUKAEMIA

REACTIONS (4)
  - Abortion induced [Unknown]
  - Maternal exposure during pregnancy [Recovered/Resolved]
  - Vomiting [Unknown]
  - Diarrhoea [Unknown]
